FAERS Safety Report 10146038 (Version 5)
Quarter: 2016Q4

REPORT INFORMATION
  Report Type: Spontaneous
  Country: JP (occurrence: JP)
  Receive Date: 20140501
  Receipt Date: 20161116
  Transmission Date: 20170206
  Serious: Yes (Hospitalization)
  Sender: FDA-Public Use
  Company Number: JP-JNJFOC-20140419313

PATIENT
  Age: 1 Year
  Sex: Male
  Weight: 10 kg

DRUGS (9)
  1. PREDNISOLONE. [Suspect]
     Active Substance: PREDNISOLONE
     Indication: KAWASAKI^S DISEASE
     Route: 065
  2. ASPIRIN. [Suspect]
     Active Substance: ASPIRIN
     Indication: KAWASAKI^S DISEASE
     Route: 048
     Dates: start: 20140221, end: 20140319
  3. PREDNISOLONE. [Suspect]
     Active Substance: PREDNISOLONE
     Indication: KAWASAKI^S DISEASE
     Route: 065
     Dates: start: 20140224
  4. PREDNISOLONE. [Suspect]
     Active Substance: PREDNISOLONE
     Indication: KAWASAKI^S DISEASE
     Route: 065
  5. IMMUNOGLOBULIN G HUMAN [Suspect]
     Active Substance: HUMAN IMMUNOGLOBULIN G
     Indication: KAWASAKI^S DISEASE
     Route: 042
     Dates: start: 20140224
  6. REMICADE [Suspect]
     Active Substance: INFLIXIMAB
     Indication: KAWASAKI^S DISEASE
     Route: 042
     Dates: start: 20140227, end: 20140227
  7. GASTER [Suspect]
     Active Substance: FAMOTIDINE
     Indication: KAWASAKI^S DISEASE
     Route: 048
     Dates: start: 20140224, end: 20140319
  8. GAMMA-GLOBULIN [Suspect]
     Active Substance: IMMUNE GLOBULIN NOS
     Indication: KAWASAKI^S DISEASE
     Route: 042
     Dates: start: 20140221, end: 20140319
  9. GAMMA-GLOBULIN [Suspect]
     Active Substance: IMMUNE GLOBULIN NOS
     Indication: KAWASAKI^S DISEASE
     Route: 042
     Dates: start: 20140218

REACTIONS (2)
  - Stevens-Johnson syndrome [Recovering/Resolving]
  - Off label use [Unknown]

NARRATIVE: CASE EVENT DATE: 20140227
